FAERS Safety Report 5229476-7 (Version None)
Quarter: 2007Q1

REPORT INFORMATION
  Report Type: 
  Country: None (occurrence: None)
  Receive Date: 20070131
  Receipt Date: 20070124
  Transmission Date: 20070707
  Serious: Yes (Death)
  Sender: FDA-Public Use
  Company Number: 235537

PATIENT
  Sex: Female

DRUGS (1)
  1. RANIBIZUMAB(RANIBIZUMAB) PWDR + SOLVENT, INJECTION SOLN [Suspect]
     Dosage: INTRAVITREAL
     Dates: start: 20060110, end: 20060308

REACTIONS (1)
  - DEATH [None]
